FAERS Safety Report 4666619-8 (Version None)
Quarter: 2005Q2

REPORT INFORMATION
  Report Type: 
  Country: None (occurrence: None)
  Receive Date: 20050519
  Receipt Date: 20050217
  Transmission Date: 20051028
  Serious: Yes (Hospitalization, Other)
  Sender: FDA-Public Use
  Company Number: PHBS2005BE02493

PATIENT
  Age: 54 Year
  Sex: Female

DRUGS (7)
  1. ZOMETA [Suspect]
     Indication: BREAST CANCER
     Dosage: 4 MG, QMO
     Route: 042
     Dates: start: 20021012, end: 20050128
  2. AREDIA [Suspect]
     Indication: BREAST CANCER
     Dosage: 90 MG, QMO
     Route: 042
     Dates: start: 20020517
  3. AREDIA [Suspect]
     Dosage: 90 MG, QMO
     Route: 042
     Dates: start: 20020719, end: 20020913
  4. ZOLADEX [Concomitant]
     Route: 065
     Dates: start: 20020517
  5. NOLVADEX [Concomitant]
     Route: 065
     Dates: start: 20020517
  6. LYSANXIA [Concomitant]
     Route: 065
  7. BIOFER [Concomitant]
     Route: 065

REACTIONS (10)
  - EXCESSIVE GRANULATION TISSUE [None]
  - IMPAIRED HEALING [None]
  - LESION EXCISION [None]
  - LOCAL ANAESTHESIA [None]
  - METASTASES TO BONE [None]
  - METASTASES TO LUNG [None]
  - OSTEONECROSIS [None]
  - TOOTH DISORDER [None]
  - TOOTH EXTRACTION [None]
  - WOUND DEBRIDEMENT [None]
